FAERS Safety Report 17600730 (Version 3)
Quarter: 2020Q3

REPORT INFORMATION
  Report Type: Spontaneous
  Country: US (occurrence: US)
  Receive Date: 20200330
  Receipt Date: 20200716
  Transmission Date: 20201102
  Serious: Yes (Other)
  Sender: FDA-Public Use
  Company Number: US-PFIZER INC-2020125902

PATIENT
  Age: 89 Year
  Sex: Female

DRUGS (1)
  1. PREMARIN [Suspect]
     Active Substance: ESTROGENS, CONJUGATED
     Indication: INADEQUATE LUBRICATION
     Dosage: 1 G, 2X/WEEK
     Route: 067
     Dates: start: 200601

REACTIONS (3)
  - Dependence [Recovered/Resolved]
  - Off label use [Unknown]
  - Product use in unapproved indication [Unknown]
